FAERS Safety Report 14995158 (Version 1)
Quarter: 2018Q2

REPORT INFORMATION
  Report Type: Spontaneous
  Country: US (occurrence: US)
  Receive Date: 20180521
  Receipt Date: 20180521
  Transmission Date: 20180711
  Serious: Yes (Other)
  Sender: FDA-Public Use
  Company Number: None

PATIENT
  Age: 75 Year
  Sex: Male
  Weight: 93.15 kg

DRUGS (4)
  1. CLENPIQ [Suspect]
     Active Substance: ANHYDROUS CITRIC ACID\MAGNESIUM OXIDE\SODIUM PICOSULFATE
     Indication: COLONOSCOPY
     Dosage: ORAL; 10 MG/3.5 G;QUANTITY:2 BOTTLES;?
     Route: 048
     Dates: start: 20180520, end: 20180521
  2. ROSUVASTATIN. [Concomitant]
     Active Substance: ROSUVASTATIN
  3. ASPIRIN 81 MG [Concomitant]
     Active Substance: ASPIRIN
  4. LABETALOL [Concomitant]
     Active Substance: LABETALOL\LABETALOL HYDROCHLORIDE

REACTIONS (4)
  - Bladder dilatation [None]
  - Urinary retention [None]
  - Insomnia [None]
  - Discomfort [None]

NARRATIVE: CASE EVENT DATE: 20180521
